FAERS Safety Report 5341241-9 (Version None)
Quarter: 2007Q2

REPORT INFORMATION
  Report Type: 
  Country: None (occurrence: None)
  Receive Date: 20070404
  Receipt Date: 20060818
  Transmission Date: 20071010
  Serious: Yes (Hospitalization, Other)
  Sender: FDA-Public Use
  Company Number: 2005093437

PATIENT
  Sex: Male
  Weight: 104.3273 kg

DRUGS (14)
  1. GEODON [Suspect]
     Indication: SCHIZOPHRENIA
     Dosage: ORAL
     Route: 048
     Dates: start: 20030501
  2. ARICEPT [Suspect]
     Indication: MEMORY IMPAIRMENT
     Dosage: ORAL
     Route: 048
     Dates: end: 20050601
  3. PAXIL [Suspect]
     Indication: ILL-DEFINED DISORDER
     Dosage: 30MG (DAILY),
     Dates: start: 20050201
  4. BUTALBITAL, ACETAMINOPHEN + CAFFEINE (BUTALBITAL, CAFFEINE, PARACETAMO [Concomitant]
  5. ZOLMITRIPTAN (ZOLMITRIPTAN) [Concomitant]
  6. DIVALPROEX (VALPROIC ACID) [Concomitant]
  7. PROZAC [Concomitant]
  8. LISINOPRIL [Concomitant]
  9. DOCUSATE (DOCUSATE) [Concomitant]
  10. OMEPRAZOLE [Concomitant]
  11. COGENTIN [Concomitant]
  12. TYLENOL [Concomitant]
  13. KLONOPIN [Concomitant]
  14. OXYBUTYNIN CHLORIDE [Concomitant]

REACTIONS (4)
  - BRADYCARDIA [None]
  - CHEST PAIN [None]
  - MEMORY IMPAIRMENT [None]
  - WEIGHT DECREASED [None]
